FAERS Safety Report 5313360-4 (Version None)
Quarter: 2007Q2

REPORT INFORMATION
  Report Type: 
  Country: None (occurrence: None)
  Receive Date: 20070426
  Receipt Date: 20070426
  Transmission Date: 20071010
  Serious: Yes (Hospitalization)
  Sender: FDA-Public Use
  Company Number: None

PATIENT
  Sex: Female

DRUGS (1)
  1. ADVAIR DISKUS 250/50 [Suspect]
     Dosage: 1 PUFF BID PO
     Route: 048
     Dates: start: 20070416, end: 20070416

REACTIONS (1)
  - DYSPNOEA [None]
